FAERS Safety Report 9300702 (Version 2)
Quarter: 2013Q3

REPORT INFORMATION
  Report Type: Spontaneous
  Country: BR (occurrence: BR)
  Receive Date: 20130521
  Receipt Date: 20130722
  Transmission Date: 20140515
  Serious: Yes (Other)
  Sender: FDA-Public Use
  Company Number: PHHY2013BR049266

PATIENT
  Age: 8 Year
  Sex: Male

DRUGS (1)
  1. RITALINA [Suspect]
     Indication: ATTENTION DEFICIT/HYPERACTIVITY DISORDER
     Dosage: 3 DF, A DAY
     Route: 048

REACTIONS (6)
  - Bipolar disorder [Recovered/Resolved]
  - Abnormal behaviour [Recovered/Resolved]
  - Convulsion [Recovered/Resolved]
  - Cerebral disorder [Recovered/Resolved]
  - Disturbance in attention [Not Recovered/Not Resolved]
  - Restlessness [Not Recovered/Not Resolved]
